FAERS Safety Report 6463225-X (Version None)
Quarter: 2009Q4

REPORT INFORMATION
  Report Type: 
  Country: None (occurrence: None)
  Receive Date: 20091130
  Receipt Date: 20091115
  Transmission Date: 20100525
  Serious: No
  Sender: FDA-Public Use
  Company Number: US-B.I. PHARMACEUTICALS,INC./RIDGEFIELD-2009-BP-13351BP

PATIENT
  Sex: Female

DRUGS (2)
  1. ZANTAC 75 [Suspect]
     Dosage: 75 MG
     Route: 048
     Dates: start: 20091113
  2. VITAMIN TAB [Concomitant]
     Indication: PREGNANCY
     Dates: start: 20050401

REACTIONS (1)
  - DYSPEPSIA [None]
